FAERS Safety Report 8241832-1 (Version None)
Quarter: 2012Q1

REPORT INFORMATION
  Report Type: 
  Country: None (occurrence: None)
  Receive Date: 20120328
  Receipt Date: 20120319
  Transmission Date: 20120608
  Serious: Yes (Hospitalization)
  Sender: FDA-Public Use
  Company Number: US-ASTRAZENECA-2012SE19017

PATIENT
  Age: 43 Year
  Sex: Male

DRUGS (12)
  1. SEROQUEL [Suspect]
     Route: 048
  2. SEROQUEL [Suspect]
     Route: 048
  3. SEROQUEL [Suspect]
     Route: 048
  4. SEROQUEL [Suspect]
     Route: 048
  5. SEROQUEL [Suspect]
     Route: 048
  6. SEROQUEL [Suspect]
     Route: 048
  7. SEROQUEL [Suspect]
     Route: 048
  8. SEROQUEL [Suspect]
     Indication: DEPRESSION
     Route: 048
  9. SEROQUEL [Suspect]
     Indication: OBSESSIVE-COMPULSIVE DISORDER
     Route: 048
  10. SEROQUEL [Suspect]
     Indication: ANXIETY
     Route: 048
  11. SEROQUEL [Suspect]
     Indication: SLEEP DISORDER
     Route: 048
  12. SEROQUEL [Suspect]
     Route: 048

REACTIONS (3)
  - SCHIZOPHRENIA [None]
  - MOOD SWINGS [None]
  - SOMNOLENCE [None]
